FAERS Safety Report 9660770 (Version 2)
Quarter: 2013Q4

REPORT INFORMATION
  Report Type: Report from Study
  Country: US (occurrence: US)
  Receive Date: 20131031
  Receipt Date: 20131107
  Transmission Date: 20140711
  Serious: Yes (Hospitalization)
  Sender: FDA-Public Use
  Company Number: US-GLAXOSMITHKLINE-Z0018915B

PATIENT
  Age: 17 Year
  Sex: Female
  Weight: 81.4 kg

DRUGS (1)
  1. BELIMUMAB [Suspect]
     Indication: SYSTEMIC LUPUS ERYTHEMATOSUS
     Dosage: 10MGK CYCLIC
     Route: 042
     Dates: start: 20130211

REACTIONS (1)
  - Benign intracranial hypertension [Not Recovered/Not Resolved]
